FAERS Safety Report 5119260-7 (Version None)
Quarter: 2006Q3

REPORT INFORMATION
  Report Type: 
  Country: None (occurrence: None)
  Receive Date: 20060929
  Receipt Date: 20060913
  Transmission Date: 20061208
  Serious: Yes (Hospitalization)
  Sender: FDA-Public Use
  Company Number: MESA-2006-015

PATIENT
  Sex: Male

DRUGS (2)
  1. CANASA [Suspect]
     Indication: COLITIS ULCERATIVE
     Dosage: 500 MG TWICE DAILY
  2. ASACOL [Suspect]
     Indication: COLITIS ULCERATIVE
     Dosage: 1200 MG THREE TIMES DAILY, ORAL
     Route: 048
     Dates: start: 20060701

REACTIONS (1)
  - ARTHRITIS [None]
